FAERS Safety Report 12169099 (Version 2)
Quarter: 2016Q1

REPORT INFORMATION
  Report Type: Spontaneous
  Country: DE (occurrence: DE)
  Receive Date: 20160310
  Receipt Date: 20160311
  Transmission Date: 20160526
  Serious: Yes (Congenital Anomaly)
  Sender: FDA-Public Use
  Company Number: GXKR2016DE001180

PATIENT

DRUGS (5)
  1. ROPINIROLE. [Suspect]
     Active Substance: ROPINIROLE
     Indication: PARKINSON^S DISEASE
     Dosage: MATERNAL DOSE (0.-5.6 GESTATIONAL WEEK): 10 MG/D/DOSAGE REDUCTION TO 2 MG/D IN EARLY PREGNANCY
     Route: 064
     Dates: start: 20141016, end: 20141126
  2. ESTRIFAM [Concomitant]
     Active Substance: ESTRADIOL
     Indication: ASSISTED FERTILISATION
     Dosage: 6 [MG/D ]
     Route: 064
     Dates: start: 20141016, end: 20141202
  3. LEVODOPA+BENSERAZIDE [Suspect]
     Active Substance: BENSERAZIDE\LEVODOPA
     Indication: PARKINSON^S DISEASE
     Dosage: MATERNAL DOSE: (6.5 TO 39 GESTATIONAL WEEK): 300/75 MG/D; DOSAGE REDUCTION TO 37.5/150 MG/D
     Route: 064
  4. PROGESTAN [Concomitant]
     Active Substance: PROGESTERONE
     Indication: ASSISTED FERTILISATION
     Dosage: 600 [MG/D ]
     Route: 064
  5. FOLSAEURE [Concomitant]
     Active Substance: FOLIC ACID
     Indication: PROPHYLAXIS OF NEURAL TUBE DEFECT
     Route: 064

REACTIONS (1)
  - Haemangioma [Unknown]

NARRATIVE: CASE EVENT DATE: 20150716
